FAERS Safety Report 9124296 (Version 1)
Quarter: 2013Q1

REPORT INFORMATION
  Report Type: Spontaneous
  Country: DE (occurrence: DE)
  Receive Date: 20130116
  Receipt Date: 20130116
  Transmission Date: 20140127
  Serious: Yes (Other)
  Sender: FDA-Public Use
  Company Number: DE-SANOFI-AVENTIS-2013SA003104

PATIENT
  Age: 54 Year
  Sex: Female
  Weight: 76 kg

DRUGS (2)
  1. ALFUZOSIN [Suspect]
     Indication: MICTURITION DISORDER
     Dosage: DAILY DOSE: 10 MG MILLGRAM(S) EVERY DAYS
     Route: 048
     Dates: start: 20120703, end: 20120713
  2. THYRONAJOD [Concomitant]
     Indication: HYPERTHYROIDISM
     Route: 048

REACTIONS (3)
  - Muscle rupture [Recovered/Resolved]
  - Contusion [Recovered/Resolved]
  - Off label use [Recovered/Resolved]
